FAERS Safety Report 23247276 (Version 1)
Quarter: 2023Q4

REPORT INFORMATION
  Report Type: Spontaneous
  Country: BE (occurrence: BE)
  Receive Date: 20231130
  Receipt Date: 20231130
  Transmission Date: 20240109
  Serious: Yes (Hospitalization, Other)
  Sender: FDA-Public Use
  Company Number: BE-BRISTOL-MYERS SQUIBB COMPANY-2023-172553

PATIENT
  Age: 76 Year

DRUGS (2)
  1. NIVOLUMAB [Suspect]
     Active Substance: NIVOLUMAB
     Indication: Sarcomatoid mesothelioma
     Dosage: DOSE : UNAVAILABLE;     FREQ : UNAVAILABLE
  2. IPILIMUMAB [Suspect]
     Active Substance: IPILIMUMAB
     Indication: Sarcomatoid mesothelioma

REACTIONS (8)
  - Immune-mediated hypophysitis [Unknown]
  - Acute kidney injury [Recovered/Resolved]
  - Pain [Unknown]
  - Polyneuropathy [Unknown]
  - Muscle atrophy [Unknown]
  - Arthritis [Unknown]
  - Adrenocortical insufficiency acute [Unknown]
  - Malignant neoplasm progression [Unknown]
